FAERS Safety Report 6109147-5 (Version None)
Quarter: 2009Q1

REPORT INFORMATION
  Report Type: 
  Country: None (occurrence: None)
  Receive Date: 20090309
  Receipt Date: 20090309
  Transmission Date: 20090719
  Serious: Yes (Other)
  Sender: FDA-Public Use
  Company Number: None

PATIENT
  Sex: Male
  Weight: 78.0187 kg

DRUGS (1)
  1. DEMEROL [Suspect]
     Indication: ABDOMINAL PAIN
     Dosage: 100 MG
     Dates: start: 20050617, end: 20090306

REACTIONS (6)
  - HAEMORRHAGE [None]
  - MALAISE [None]
  - NAUSEA [None]
  - PRURITUS [None]
  - URTICARIA [None]
  - VOMITING [None]
